FAERS Safety Report 18481013 (Version 1)
Quarter: 2020Q4

REPORT INFORMATION
  Report Type: Spontaneous
  Country: US (occurrence: US)
  Receive Date: 20201109
  Receipt Date: 20201109
  Transmission Date: 20210114
  Serious: Yes (Disabling)
  Sender: FDA-Public Use
  Company Number: None

PATIENT
  Age: 4 Year
  Sex: Female
  Weight: 36.45 kg

DRUGS (2)
  1. MIRALAX [Suspect]
     Active Substance: POLYETHYLENE GLYCOL 3350
     Indication: CONSTIPATION
     Dosage: ?          OTHER FREQUENCY:AS DR. PRESCRIBED;?
     Route: 048
  2. PROBIOTICS [Concomitant]
     Active Substance: PROBIOTICS NOS

REACTIONS (10)
  - Fall [None]
  - Anger [None]
  - Malaise [None]
  - Tremor [None]
  - Clumsiness [None]
  - Crying [None]
  - Tic [None]
  - Nervousness [None]
  - Head injury [None]
  - Tourette^s disorder [None]

NARRATIVE: CASE EVENT DATE: 20120801
